FAERS Safety Report 15894785 (Version 1)
Quarter: 2019Q1

REPORT INFORMATION
  Report Type: Spontaneous
  Country: US (occurrence: US)
  Receive Date: 20190109
  Receipt Date: 20190109
  Transmission Date: 20190417
  Serious: No
  Sender: FDA-Public Use
  Company Number: None

PATIENT
  Age: 61 Year
  Sex: Female

DRUGS (1)
  1. COSENTYX [Suspect]
     Active Substance: SECUKINUMAB
     Indication: PSORIATIC ARTHROPATHY
     Dosage: OTHER
     Route: 058
     Dates: start: 201501

REACTIONS (4)
  - Therapy cessation [None]
  - Condition aggravated [None]
  - Gastroenteritis norovirus [None]
  - Dehydration [None]

NARRATIVE: CASE EVENT DATE: 20190108
